FAERS Safety Report 26013471 (Version 1)
Quarter: 2025Q4

REPORT INFORMATION
  Report Type: Spontaneous
  Country: US (occurrence: US)
  Receive Date: 20251107
  Receipt Date: 20251107
  Transmission Date: 20260117
  Serious: No
  Sender: PFIZER
  Company Number: US-PFIZER INC-PV202400032261

PATIENT
  Age: 87 Year
  Sex: Female
  Weight: 70.884 kg

DRUGS (2)
  1. IBRANCE [Suspect]
     Active Substance: PALBOCICLIB
     Indication: Bone disorder
     Dosage: 75 MG, CYCLIC (TAKE 1 TABLET (75 MG TOTAL) DAILY ON DAYS 1-21 EVERY 28 DAYS)
     Route: 048
  2. IBRANCE [Suspect]
     Active Substance: PALBOCICLIB
     Indication: Breast cancer female

REACTIONS (2)
  - Laboratory test abnormal [Unknown]
  - Off label use [Unknown]
